FAERS Safety Report 8978081 (Version 1)
Quarter: 2012Q4

REPORT INFORMATION
  Report Type: Spontaneous
  Country: US (occurrence: None)
  Receive Date: 20121218
  Receipt Date: 20121218
  Transmission Date: 20130627
  Serious: No
  Sender: FDA-Public Use
  Company Number: None

PATIENT
  Age: 64 Year
  Sex: Male

DRUGS (2)
  1. NOVOLOG [Suspect]
  2. LANTUS [Suspect]

REACTIONS (11)
  - Medication error [None]
  - Overdose [None]
  - Hypoglycaemia [None]
  - Disorientation [None]
  - Loss of consciousness [None]
  - Sternal fracture [None]
  - Pleural effusion [None]
  - Head injury [None]
  - Syncope [None]
  - Road traffic accident [None]
  - Incorrect dose administered [None]
